FAERS Safety Report 17638905 (Version 1)
Quarter: 2020Q2

REPORT INFORMATION
  Report Type: Spontaneous
  Country: US (occurrence: US)
  Receive Date: 20200407
  Receipt Date: 20200407
  Transmission Date: 20200713
  Serious: Yes (Other)
  Sender: FDA-Public Use
  Company Number: US-PFIZER INC-2020144202

PATIENT
  Age: 70 Year
  Sex: Male
  Weight: 83.91 kg

DRUGS (2)
  1. ENTRESTO [Concomitant]
     Active Substance: SACUBITRIL\VALSARTAN
     Indication: ANTICOAGULANT THERAPY
     Dosage: UNK
  2. VYNDAMAX [Suspect]
     Active Substance: TAFAMIDIS
     Indication: ANTICOAGULANT THERAPY
     Dosage: 61 MG, 1X/DAY
     Route: 048
     Dates: start: 201912

REACTIONS (3)
  - Cerebrovascular accident [Recovering/Resolving]
  - Off label use [Unknown]
  - Product use in unapproved indication [Unknown]

NARRATIVE: CASE EVENT DATE: 20200129
